FAERS Safety Report 4803120-2 (Version None)
Quarter: 2005Q4

REPORT INFORMATION
  Report Type: 
  Country: None (occurrence: None)
  Receive Date: 20051019
  Receipt Date: 20051006
  Transmission Date: 20060501
  Serious: Yes (Other)
  Sender: FDA-Public Use
  Company Number: US-GLAXOSMITHKLINE-A0577321A

PATIENT
  Age: 27 Year
  Sex: Female

DRUGS (1)
  1. ACLOVATE OINTMENT [Suspect]
     Indication: RASH
     Route: 061
     Dates: start: 20050919, end: 20050921

REACTIONS (4)
  - DRUG ADMINISTRATION ERROR [None]
  - MELANOCYTIC NAEVUS [None]
  - PALLOR [None]
  - SKIN HYPOPIGMENTATION [None]
